FAERS Safety Report 6346343-6 (Version None)
Quarter: 2009Q3

REPORT INFORMATION
  Report Type: 
  Country: None (occurrence: None)
  Receive Date: 20090909
  Receipt Date: 20090828
  Transmission Date: 20100115
  Serious: Yes (Other)
  Sender: FDA-Public Use
  Company Number: AU-AMGEN-US359929

PATIENT
  Age: 55 Year
  Sex: Female

DRUGS (3)
  1. ENBREL [Suspect]
     Indication: PSORIATIC ARTHROPATHY
     Dosage: 50MG WEEKLY
     Route: 058
     Dates: start: 20060101
  2. ATACAND [Concomitant]
     Dosage: 32MG/DAY
     Route: 065
  3. NORVASC [Concomitant]
     Dosage: 10MG/DAY
     Route: 065

REACTIONS (1)
  - SARCOIDOSIS [None]
